FAERS Safety Report 5395286-3 (Version None)
Quarter: 2007Q3

REPORT INFORMATION
  Report Type: 
  Country: None (occurrence: None)
  Receive Date: 20070724
  Receipt Date: 20070720
  Transmission Date: 20080115
  Serious: Yes (Other)
  Sender: FDA-Public Use
  Company Number: HQ6023006JAN2003

PATIENT
  Sex: Female

DRUGS (1)
  1. PREMPRO [Suspect]
     Indication: HORMONE REPLACEMENT THERAPY
     Dosage: 1 TABLET DAILY (UNSPECIFIED STRENGTH)
     Route: 048
     Dates: start: 19970101, end: 20010101

REACTIONS (1)
  - BREAST CANCER METASTATIC [None]
